FAERS Safety Report 8789376 (Version 1)
Quarter: 2012Q4

REPORT INFORMATION
  Report Type: Spontaneous
  Country: US (occurrence: None)
  Receive Date: 20120904
  Receipt Date: 20120904
  Transmission Date: 20130627
  Serious: Yes (Hospitalization, Other)
  Sender: FDA-Public Use
  Company Number: JPI-P-024368

PATIENT
  Age: 54 Year
  Sex: Female
  Weight: 58.97 kg

DRUGS (23)
  1. XYREM [Suspect]
     Indication: NARCOLEPSY
     Route: 048
     Dates: start: 20050217
  2. XYREM [Suspect]
     Indication: EXCESSIVE DAYTIME SLEEPINESS
     Route: 048
     Dates: start: 20050217
  3. XYREM [Suspect]
     Indication: NARCOLEPSY
     Route: 048
     Dates: start: 20050217
  4. XYREM [Suspect]
     Indication: EXCESSIVE DAYTIME SLEEPINESS
     Route: 048
     Dates: start: 20050217
  5. XYREM [Suspect]
     Indication: NARCOLEPSY
     Route: 048
     Dates: start: 20050217
  6. XYREM [Suspect]
     Indication: EXCESSIVE DAYTIME SLEEPINESS
     Route: 048
     Dates: start: 20050217
  7. XYREM [Suspect]
     Indication: NARCOLEPSY
     Route: 048
     Dates: start: 20050217
  8. XYREM [Suspect]
     Indication: EXCESSIVE DAYTIME SLEEPINESS
     Route: 048
     Dates: start: 20050217
  9. XYREM [Suspect]
     Indication: NARCOLEPSY
     Dates: start: 20120529
  10. XYREM [Suspect]
     Indication: EXCESSIVE DAYTIME SLEEPINESS
     Dates: start: 20120529
  11. FENTANYL [Suspect]
     Route: 061
     Dates: start: 2007
  12. MODAFINIL [Concomitant]
  13. OXYCODONE (OXYCONTIN AND ROXYCODONE) [Concomitant]
  14. BUPROPION HYDROCHLORIDE [Concomitant]
  15. ESOMEPRAZOLE MAGNESIUM [Concomitant]
  16. POLYETHYLENE GLYCOL [Concomitant]
  17. LORAZEPAM [Concomitant]
  18. HYDROXYCHLOROQUINE [Concomitant]
  19. SOLIFENACIN SUCCINATE [Concomitant]
  20. AMLODIPINE BESYLATE [Concomitant]
  21. COLESEVELAM HYDROCHLORIDE [Concomitant]
  22. CALCIUM [Concomitant]
  23. MILNACIPRAN HYDROCHLORIDE [Concomitant]

REACTIONS (8)
  - Coma [None]
  - Anaemia [None]
  - Spinal disorder [None]
  - Cyst [None]
  - Incorrect dose administered [None]
  - Somnambulism [None]
  - Fall [None]
  - Head injury [None]
